FAERS Safety Report 21165355 (Version 1)
Quarter: 2022Q3

REPORT INFORMATION
  Report Type: Report from Study
  Country: US (occurrence: US)
  Receive Date: 20220803
  Receipt Date: 20220803
  Transmission Date: 20221027
  Serious: Yes (Other)
  Sender: FDA-Public Use
  Company Number: US-HLS-202201100

PATIENT
  Sex: Male

DRUGS (1)
  1. CLOZAPINE [Suspect]
     Active Substance: CLOZAPINE
     Indication: Product used for unknown indication
     Dosage: 250MG
     Route: 065
     Dates: end: 202205

REACTIONS (3)
  - Neutropenia [Recovered/Resolved]
  - Neutrophilia [Recovered/Resolved]
  - Drug ineffective [Unknown]
